FAERS Safety Report 10064533 (Version 1)
Quarter: 2014Q2

REPORT INFORMATION
  Report Type: Spontaneous
  Country: GB (occurrence: GB)
  Receive Date: 20140408
  Receipt Date: 20140408
  Transmission Date: 20141212
  Serious: Yes (Hospitalization)
  Sender: FDA-Public Use
  Company Number: GB-BRISTOL-MYERS SQUIBB COMPANY-20565545

PATIENT
  Age: 58 Year
  Sex: Male
  Weight: 50.5 kg

DRUGS (5)
  1. ELIQUIS [Suspect]
     Indication: CEREBROVASCULAR ACCIDENT
     Dates: start: 20131204, end: 20140219
  2. ATORVASTATIN [Concomitant]
  3. BEZAFIBRATE [Concomitant]
  4. EPILIM [Concomitant]
  5. LOSARTAN [Concomitant]

REACTIONS (1)
  - Pancytopenia [Recovering/Resolving]
